FAERS Safety Report 14276268 (Version 1)
Quarter: 2017Q4

REPORT INFORMATION
  Report Type: Spontaneous
  Country: US (occurrence: US)
  Receive Date: 20171211
  Receipt Date: 20171211
  Transmission Date: 20180321
  Serious: Yes (Disabling, Other)
  Sender: FDA-Public Use
  Company Number: US-OTSUKA-2017_004491

PATIENT
  Age: 56 Year
  Sex: Female

DRUGS (1)
  1. ABILIFY [Suspect]
     Active Substance: ARIPIPRAZOLE
     Indication: BIPOLAR II DISORDER
     Dosage: 10 MG, QD
     Route: 065

REACTIONS (8)
  - Deafness [Unknown]
  - Tremor [Recovered/Resolved]
  - Disability [Not Recovered/Not Resolved]
  - Weight increased [Unknown]
  - Memory impairment [Recovered/Resolved]
  - Hearing aid therapy [Unknown]
  - Product use in unapproved indication [Unknown]
  - Depression [Unknown]
